FAERS Safety Report 15539218 (Version 1)
Quarter: 2018Q4

REPORT INFORMATION
  Report Type: Spontaneous
  Country: FR (occurrence: FR)
  Receive Date: 20181022
  Receipt Date: 20181022
  Transmission Date: 20190205
  Serious: Yes (Other)
  Sender: FDA-Public Use
  Company Number: FR-009507513-1810FRA008966

PATIENT
  Sex: Male

DRUGS (1)
  1. ISENTRESS [Suspect]
     Active Substance: RALTEGRAVIR POTASSIUM
     Dosage: (FORMULATION: ^GRANULES FOR SUSPENSION^, 4 PACKETS TO BE TAKEN IN THE MORNING AND 4 IN THE EVENING
     Route: 050

REACTIONS (4)
  - Product availability issue [Unknown]
  - Off label use [Unknown]
  - Gastrointestinal tube insertion [Unknown]
  - Wrong technique in product usage process [Unknown]
